FAERS Safety Report 10521706 (Version 1)
Quarter: 2014Q4

REPORT INFORMATION
  Report Type: Spontaneous
  Country: US (occurrence: US)
  Receive Date: 20141016
  Receipt Date: 20141016
  Transmission Date: 20150528
  Serious: No
  Sender: FDA-Public Use
  Company Number: US-ASTRAZENECA-2014SE75555

PATIENT
  Age: 32 Year
  Sex: Female

DRUGS (1)
  1. ENTOCORT EC [Suspect]
     Active Substance: BUDESONIDE
     Indication: CROHN^S DISEASE
     Route: 048

REACTIONS (12)
  - Diarrhoea [Unknown]
  - Frustration [Not Recovered/Not Resolved]
  - Pneumonia [Recovering/Resolving]
  - Feeling guilty [Not Recovered/Not Resolved]
  - Fatigue [Unknown]
  - Infection [Unknown]
  - Proctalgia [Unknown]
  - Asthenia [Not Recovered/Not Resolved]
  - Abdominal pain [Unknown]
  - Nausea [Not Recovered/Not Resolved]
  - Arthralgia [Unknown]
  - Depression [Unknown]
